APPROVED DRUG PRODUCT: YORVIPATH
Active Ingredient: PALOPEGTERIPARATIDE
Strength: EQ 0.294MG TERIPARATIDE/0.98ML (EQ 0.294MG TERIPARATIDE/0.98ML)
Dosage Form/Route: SOLUTION;SUBCUTANEOUS
Application: N216490 | Product #002
Applicant: ASCENDIS PHARMA BONE DISEASES AS
Approved: Aug 9, 2024 | RLD: Yes | RS: No | Type: RX

PATENTS:
Patent 12453778 | Expires: Sep 28, 2037
Patent 12403182 | Expires: Nov 12, 2042
Patent 12295989 | Expires: Sep 28, 2037
Patent 11857603 | Expires: Sep 28, 2037
Patent 11590207 | Expires: Sep 28, 2037
Patent 8906847 | Expires: Apr 30, 2031
Patent 11890326 | Expires: Sep 28, 2037
Patent 11759504 | Expires: Sep 28, 2037
Patent 11918628 | Expires: Sep 28, 2037

EXCLUSIVITY:
Code: NCE | Date: Aug 9, 2029
Code: ODE-492 | Date: Aug 9, 2031